FAERS Safety Report 8846871 (Version 2)
Quarter: 2012Q4

REPORT INFORMATION
  Report Type: 
  Country: US (occurrence: US)
  Receive Date: 20121018
  Receipt Date: 20121025
  Transmission Date: 20130627
  Serious: Yes (Hospitalization)
  Sender: FDA-Public Use
  Company Number: US-GENZYME-POMP-1002495

PATIENT
  Age: 0 None
  Sex: Female
  Weight: 6.7 kg

DRUGS (3)
  1. MYOZYME [Suspect]
     Indication: GLYCOGEN STORAGE DISEASE TYPE II
     Dosage: 20 mg/kg, UNK
  2. MYOZYME [Suspect]
     Dosage: 30 mg/kg, UNK
     Route: 042
  3. MYOZYME [Suspect]
     Dosage: 25 mg/kg, qw
     Route: 042

REACTIONS (2)
  - Cardiac failure [Not Recovered/Not Resolved]
  - Urticaria [Unknown]
